FAERS Safety Report 8172056-4 (Version None)
Quarter: 2012Q1

REPORT INFORMATION
  Report Type: 
  Country: None (occurrence: None)
  Receive Date: 20120228
  Receipt Date: 20120213
  Transmission Date: 20120608
  Serious: Yes (Hospitalization)
  Sender: FDA-Public Use
  Company Number: PT-MEDIMMUNE-MEDI-0014467

PATIENT
  Sex: Male
  Weight: 4.25 kg

DRUGS (3)
  1. SYNAGIS [Suspect]
     Dates: start: 20111111, end: 20111111
  2. SYNAGIS [Suspect]
  3. ANESTHESIA MEDICINAL PRODUCT [Concomitant]
     Dates: start: 20120103, end: 20120103

REACTIONS (2)
  - DRUG INEFFECTIVE [None]
  - RESPIRATORY SYNCYTIAL VIRUS BRONCHIOLITIS [None]
